FAERS Safety Report 4290447-9 (Version None)
Quarter: 2004Q1

REPORT INFORMATION
  Report Type: 
  Country: None (occurrence: None)
  Receive Date: 20040210
  Receipt Date: 20040129
  Transmission Date: 20041129
  Serious: Yes (Hospitalization)
  Sender: FDA-Public Use
  Company Number: WAES 0402GBR00018

PATIENT
  Age: 76 Year
  Sex: Male

DRUGS (4)
  1. ALBUTEROL [Concomitant]
     Route: 055
  2. ASPIRIN [Concomitant]
  3. IPRATROPIUM BROMIDE [Concomitant]
     Route: 055
  4. ZOCOR [Suspect]
     Route: 048
     Dates: start: 20030801, end: 20040107

REACTIONS (1)
  - LYMPHOPENIA [None]
